FAERS Safety Report 4357453-7 (Version None)
Quarter: 2004Q2

REPORT INFORMATION
  Report Type: 
  Country: None (occurrence: None)
  Receive Date: 20040510
  Receipt Date: 20040430
  Transmission Date: 20050107
  Serious: Yes (Hospitalization)
  Sender: FDA-Public Use
  Company Number: 200410300BNE

PATIENT
  Age: 77 Year
  Sex: Male

DRUGS (5)
  1. ASPIRIN [Suspect]
     Indication: PROPHYLAXIS
     Dosage: 75 MG, TOTAL DAILY, ORAL
     Route: 048
     Dates: start: 19990101, end: 20040406
  2. BEXTRA [Suspect]
     Indication: ANKYLOSING SPONDYLITIS
     Dosage: 20 MG, TOTAL DAILY, ORAL
     Route: 048
     Dates: start: 20040319, end: 20040406
  3. PRINZIDE [Concomitant]
  4. CELECOXIB [Concomitant]
  5. QUININE [Concomitant]

REACTIONS (5)
  - ABDOMINAL PAIN UPPER [None]
  - DUODENITIS [None]
  - GASTRIC ULCER [None]
  - LETHARGY [None]
  - NAUSEA [None]
